FAERS Safety Report 6854120-2 (Version None)
Quarter: 2010Q3

REPORT INFORMATION
  Report Type: 
  Country: None (occurrence: None)
  Receive Date: 20100717
  Receipt Date: 20071229
  Transmission Date: 20110219
  Serious: Yes (Other)
  Sender: FDA-Public Use
  Company Number: US-PFIZER INC-2008000590

PATIENT
  Sex: Female
  Weight: 63.5 kg

DRUGS (19)
  1. CHANTIX [Suspect]
     Indication: SMOKING CESSATION THERAPY
     Dates: start: 20071221
  2. ACCUPRIL [Concomitant]
  3. GLUCOPHAGE [Concomitant]
  4. TOPROL-XL [Concomitant]
  5. LANOXIN [Concomitant]
  6. LASIX [Concomitant]
  7. NITRO-SPRAY [Concomitant]
  8. POTASSIUM CHLORIDE [Concomitant]
  9. CRESTOR [Concomitant]
  10. ZETIA [Concomitant]
  11. EFFEXOR XR [Concomitant]
  12. CALCIUM [Concomitant]
  13. ACETYLSALICYLIC ACID [Concomitant]
  14. ZYRTEC [Concomitant]
  15. VITAMIN C [Concomitant]
  16. LOVAZA [Concomitant]
  17. VITAMIN E [Concomitant]
  18. XANAX [Concomitant]
  19. MUCINEX [Concomitant]

REACTIONS (5)
  - ASTHENIA [None]
  - HYPERHIDROSIS [None]
  - MALAISE [None]
  - NAUSEA [None]
  - TREMOR [None]
